FAERS Safety Report 10913562 (Version 2)
Quarter: 2015Q2

REPORT INFORMATION
  Report Type: Spontaneous
  Country: US (occurrence: US)
  Receive Date: 20150313
  Receipt Date: 20150609
  Transmission Date: 20150821
  Serious: Yes (Hospitalization)
  Sender: FDA-Public Use
  Company Number: US-ASTRAZENECA-2015SE22833

PATIENT
  Age: 50 Year
  Sex: Male

DRUGS (1)
  1. QUETIAPINE [Suspect]
     Active Substance: QUETIAPINE
     Indication: BIPOLAR DISORDER
     Route: 048

REACTIONS (4)
  - Pancreatitis acute [Recovering/Resolving]
  - Pancytopenia [Recovering/Resolving]
  - Hyperglycaemia [Recovering/Resolving]
  - Hypertriglyceridaemia [Recovering/Resolving]
